FAERS Safety Report 20988504 (Version 4)
Quarter: 2022Q3

REPORT INFORMATION
  Report Type: Spontaneous
  Country: US (occurrence: US)
  Receive Date: 20220621
  Receipt Date: 20220809
  Transmission Date: 20221026
  Serious: Yes (Other)
  Sender: FDA-Public Use
  Company Number: US-PFIZER INC-202200845455

PATIENT
  Age: 69 Year
  Sex: Female
  Weight: 83.91 kg

DRUGS (4)
  1. ZOSYN [Suspect]
     Active Substance: PIPERACILLIN SODIUM\TAZOBACTAM SODIUM
     Indication: Liver abscess
     Dosage: 3.375 G (IV PIC LIVE OVER 30MIN (200ML/HR) EVERY 8 HOURS)
     Route: 042
     Dates: start: 20220506, end: 20220613
  2. METRONIDAZOLE [Suspect]
     Active Substance: METRONIDAZOLE
     Dosage: 1 DF (5 MG/ML)
  3. BACILLUS COAGULANS [Concomitant]
     Active Substance: BACILLUS COAGULANS
     Indication: Central venous catheterisation
     Dosage: 1 DF, DAILY
  4. TRAZODONE [Concomitant]
     Active Substance: TRAZODONE HYDROCHLORIDE
     Indication: Somnolence
     Dosage: 100 MG (100MG TAKEN AT NIGHT )

REACTIONS (13)
  - Drug-induced liver injury [Recovering/Resolving]
  - Near death experience [Recovering/Resolving]
  - Gastrointestinal obstruction [Recovering/Resolving]
  - Off label use [Unknown]
  - Incorrect product administration duration [Unknown]
  - Pyrexia [Recovering/Resolving]
  - Diarrhoea [Recovering/Resolving]
  - Nausea [Recovering/Resolving]
  - Hypertransaminasaemia [Unknown]
  - Abnormal faeces [Recovering/Resolving]
  - Malaise [Recovering/Resolving]
  - Retching [Recovering/Resolving]
  - Urine output decreased [Recovering/Resolving]

NARRATIVE: CASE EVENT DATE: 20220101
